FAERS Safety Report 4860373-2 (Version None)
Quarter: 2005Q4

REPORT INFORMATION
  Report Type: 
  Country: None (occurrence: None)
  Receive Date: 20051215
  Receipt Date: 20051201
  Transmission Date: 20060501
  Serious: Yes (Other)
  Sender: FDA-Public Use
  Company Number: 05-000924

PATIENT
  Sex: Male

DRUGS (1)
  1. DORYX [Suspect]
     Indication: DERMATITIS
     Dosage: 75 MG, QD, ORAL
     Route: 048
     Dates: start: 20051128, end: 20051201

REACTIONS (1)
  - HIV TEST FALSE POSITIVE [None]
